FAERS Safety Report 16531239 (Version 4)
Quarter: 2022Q2

REPORT INFORMATION
  Report Type: Spontaneous
  Country: US (occurrence: US)
  Receive Date: 20190705
  Receipt Date: 20220427
  Transmission Date: 20220721
  Serious: No
  Sender: FDA-Public Use
  Company Number: US-PFIZER INC-2019285080

PATIENT
  Age: 65 Year
  Sex: Female
  Weight: 85.28 kg

DRUGS (3)
  1. CHANTIX [Suspect]
     Active Substance: VARENICLINE TARTRATE
     Indication: Smoking cessation therapy
     Dosage: UNK
     Dates: start: 2020
  2. CHANTIX [Suspect]
     Active Substance: VARENICLINE TARTRATE
     Dosage: 0.5 MG
     Dates: start: 2021
  3. CHANTIX [Suspect]
     Active Substance: VARENICLINE TARTRATE
     Dosage: 1 MG
     Dates: start: 2021, end: 2021

REACTIONS (7)
  - Chronic obstructive pulmonary disease [Unknown]
  - Illness [Unknown]
  - Vomiting [Recovered/Resolved]
  - Nausea [Unknown]
  - Memory impairment [Unknown]
  - Prescription drug used without a prescription [Unknown]
  - Recalled product administered [Unknown]

NARRATIVE: CASE EVENT DATE: 20200101
